FAERS Safety Report 9464202 (Version 1)
Quarter: 2013Q3

REPORT INFORMATION
  Report Type: Spontaneous
  Country: DE (occurrence: DE)
  Receive Date: 20130819
  Receipt Date: 20130819
  Transmission Date: 20140515
  Serious: Yes (Hospitalization, Other)
  Sender: FDA-Public Use
  Company Number: DE-MYLANLABS-2013S1018179

PATIENT
  Age: 38 Year
  Sex: Female

DRUGS (1)
  1. SERTRALINE [Suspect]
     Indication: DEPRESSION
     Dosage: 50 [MG/D ]
     Route: 048

REACTIONS (2)
  - Gestational diabetes [Recovered/Resolved]
  - Exposure during pregnancy [Recovered/Resolved]
